FAERS Safety Report 5863400-9 (Version None)
Quarter: 2008Q3

REPORT INFORMATION
  Report Type: 
  Country: None (occurrence: None)
  Receive Date: 20080828
  Receipt Date: 20080820
  Transmission Date: 20090109
  Serious: Yes (Other)
  Sender: FDA-Public Use
  Company Number: PHHY2008BR18840

PATIENT
  Age: 60 Year
  Sex: Female

DRUGS (2)
  1. EXFORGE [Suspect]
     Indication: HYPERTENSION
     Dosage: 160/5 MG DAILY
     Route: 048
     Dates: start: 20030101, end: 20080819
  2. PURAN T4 [Concomitant]
     Indication: HYPOTHYROIDISM
     Dosage: 25 MG, QD
     Route: 048
     Dates: start: 20040101

REACTIONS (1)
  - SCHAMBERG'S DISEASE [None]
